FAERS Safety Report 7825297-7 (Version None)
Quarter: 2011Q4

REPORT INFORMATION
  Report Type: 
  Country: None (occurrence: None)
  Receive Date: 20111019
  Receipt Date: 20111014
  Transmission Date: 20120403
  Serious: Yes (Hospitalization)
  Sender: FDA-Public Use
  Company Number: BR-GLAXOSMITHKLINE-A0949578A

PATIENT
  Sex: Female
  Weight: 52 kg

DRUGS (1)
  1. ALBUTEROL [Suspect]
     Indication: ASTHMA
     Dosage: 1PUFF PER DAY
     Route: 065

REACTIONS (2)
  - HYPERAESTHESIA [None]
  - PAIN [None]
